FAERS Safety Report 4489338-X (Version None)
Quarter: 2004Q4

REPORT INFORMATION
  Report Type: 
  Country: None (occurrence: None)
  Receive Date: 20041026
  Receipt Date: 20041011
  Transmission Date: 20050328
  Serious: Yes (Hospitalization)
  Sender: FDA-Public Use
  Company Number: 2004AP05269

PATIENT
  Sex: Male

DRUGS (1)
  1. FELODIPINE [Suspect]

REACTIONS (3)
  - JOINT SWELLING [None]
  - OEDEMA [None]
  - RENAL DISORDER [None]
